FAERS Safety Report 9547092 (Version 2)
Quarter: 2013Q3

REPORT INFORMATION
  Report Type: Spontaneous
  Country: IT (occurrence: IT)
  Receive Date: 20130924
  Receipt Date: 20130927
  Transmission Date: 20140515
  Serious: Yes (Hospitalization)
  Sender: FDA-Public Use
  Company Number: PHHY2013IT105714

PATIENT
  Sex: Female

DRUGS (1)
  1. ESTRADERM MX [Suspect]
     Indication: HORMONE REPLACEMENT THERAPY
     Dosage: 25 UG, DAILY
     Route: 062
     Dates: start: 19830101, end: 20130906

REACTIONS (1)
  - Deep vein thrombosis [Recovering/Resolving]
